FAERS Safety Report 14678934 (Version 5)
Quarter: 2018Q3

REPORT INFORMATION
  Report Type: Spontaneous
  Country: US (occurrence: US)
  Receive Date: 20180326
  Receipt Date: 20180918
  Transmission Date: 20181010
  Serious: Yes (Other)
  Sender: FDA-Public Use
  Company Number: US-BAYER-2017-030869

PATIENT
  Age: 41 Year
  Sex: Female
  Weight: 99.77 kg

DRUGS (10)
  1. DEPO?PROVERA [Concomitant]
     Active Substance: MEDROXYPROGESTERONE ACETATE
     Dosage: UNK
     Dates: start: 2013
  2. TRAMADOL. [Concomitant]
     Active Substance: TRAMADOL
     Dosage: UNK
     Dates: start: 2016
  3. FLEXERIL [Concomitant]
     Active Substance: CYCLOBENZAPRINE HYDROCHLORIDE
     Dosage: UNK
     Dates: start: 2016, end: 2017
  4. DICLOFENAC [DICLOFENAC] [Concomitant]
     Active Substance: DICLOFENAC SODIUM
     Dosage: UNK
     Dates: start: 2017
  5. PERCOCET [Concomitant]
     Active Substance: ACETAMINOPHEN\OXYCODONE HYDROCHLORIDE
     Dosage: UNK
     Dates: start: 2017
  6. FERROUS SULFATE. [Concomitant]
     Active Substance: FERROUS SULFATE
     Dosage: UNK
     Dates: start: 2016, end: 2017
  7. CYCLOBENZAPRINE. [Concomitant]
     Active Substance: CYCLOBENZAPRINE
     Dosage: UNK
     Dates: start: 2016
  8. DICLOFENAC SODIUM. [Concomitant]
     Active Substance: DICLOFENAC SODIUM
     Dosage: UNK
     Dates: start: 2016
  9. MIRENA [Suspect]
     Active Substance: LEVONORGESTREL
     Dosage: 20 MCG/24HR, UNK
     Dates: start: 20150724
  10. POLYETHYLENE GLYCOL [Concomitant]
     Active Substance: POLYETHYLENE GLYCOLS
     Dosage: UNK
     Dates: start: 2016

REACTIONS (35)
  - Genital haemorrhage [Recovering/Resolving]
  - Fatigue [Unknown]
  - Vaginal haemorrhage [Recovering/Resolving]
  - Dental restoration failure [Unknown]
  - Vision blurred [Unknown]
  - Cyst [Unknown]
  - Haemorrhoids [Unknown]
  - Vaginal discharge [Unknown]
  - Arthritis [Unknown]
  - Pollakiuria [Unknown]
  - Menorrhagia [Recovering/Resolving]
  - Chondropathy [Unknown]
  - Weight increased [Unknown]
  - Rectal haemorrhage [Recovering/Resolving]
  - Allergy to metals [Unknown]
  - Device ineffective [Unknown]
  - Insomnia [Unknown]
  - Vaginal infection [Unknown]
  - Paraesthesia [Unknown]
  - Tooth fracture [Unknown]
  - Abdominal pain [Unknown]
  - Headache [Unknown]
  - Hypoaesthesia [Unknown]
  - Anaemia [Unknown]
  - Loss of libido [Unknown]
  - Bladder disorder [Unknown]
  - Urinary tract disorder [Unknown]
  - Migraine [Unknown]
  - Headache [Unknown]
  - Dysmenorrhoea [Recovering/Resolving]
  - Back pain [Unknown]
  - Nail disorder [Unknown]
  - Alopecia [Unknown]
  - Depression [Unknown]
  - Arthralgia [Unknown]

NARRATIVE: CASE EVENT DATE: 2011
